FAERS Safety Report 8135352-2 (Version None)
Quarter: 2012Q1

REPORT INFORMATION
  Report Type: 
  Country: None (occurrence: None)
  Receive Date: 20120210
  Receipt Date: 20120126
  Transmission Date: 20120608
  Serious: Yes (Other)
  Sender: FDA-Public Use
  Company Number: UCM201201-000004

PATIENT
  Age: 85 Year
  Sex: Female
  Weight: 61.6892 kg

DRUGS (12)
  1. ASPIRIN [Concomitant]
  2. FISH OIL [Concomitant]
  3. MULTI-VITAMINS [Concomitant]
  4. LIPITOR [Concomitant]
  5. DIOVAN HCT [Concomitant]
  6. CLONIDINE HCL [Suspect]
     Indication: HYPERTENSION
     Dosage: 0.1 MG TWO TIMES DAILY
     Dates: start: 20110913, end: 20111115
  7. ASCORBIC ACID [Concomitant]
  8. VITAMIN-MINERAL COMPOUND TAB [Concomitant]
  9. VITAMIN D [Concomitant]
  10. CALCIUM 600 PLUS VITAMIN D [Concomitant]
  11. METOPROLOL SUCCINATE EXTENDED RELEASE [Concomitant]
  12. LUTEIN [Concomitant]

REACTIONS (10)
  - LOSS OF CONSCIOUSNESS [None]
  - WEIGHT DECREASED [None]
  - BACK PAIN [None]
  - SOMNOLENCE [None]
  - CONTUSION [None]
  - CONVULSION [None]
  - CHEST PAIN [None]
  - FEELING ABNORMAL [None]
  - VERTIGO [None]
  - NO THERAPEUTIC RESPONSE [None]
